FAERS Safety Report 9146988 (Version 5)
Quarter: 2019Q1

REPORT INFORMATION
  Report Type: Report from Study
  Country: JP (occurrence: JP)
  Receive Date: 20130307
  Receipt Date: 20190204
  Transmission Date: 20190418
  Serious: Yes (Other)
  Sender: FDA-Public Use
  Company Number: JP-ROCHE-1195352

PATIENT

DRUGS (5)
  1. BEVACIZUMAB. [Suspect]
     Active Substance: BEVACIZUMAB
     Indication: COLORECTAL CANCER
     Dosage: DAY 1
     Route: 042
  2. LEUCOVORIN CALCIUM. [Suspect]
     Active Substance: LEUCOVORIN CALCIUM
     Indication: COLORECTAL CANCER
     Dosage: DAY 1
     Route: 065
  3. FLUOROURACIL. [Suspect]
     Active Substance: FLUOROURACIL
     Route: 042
  4. FLUOROURACIL. [Suspect]
     Active Substance: FLUOROURACIL
     Indication: COLORECTAL CANCER
     Route: 042
  5. OXALIPLATIN. [Suspect]
     Active Substance: OXALIPLATIN
     Indication: COLORECTAL CANCER
     Dosage: DAY 1
     Route: 065

REACTIONS (16)
  - Diarrhoea [Unknown]
  - Genital haemorrhage [Unknown]
  - Neutropenia [Unknown]
  - Gamma-glutamyltransferase increased [Unknown]
  - Blood bilirubin increased [Unknown]
  - Leukopenia [Unknown]
  - Myocardial infarction [Unknown]
  - Fatigue [Unknown]
  - Stomatitis [Unknown]
  - Gastrointestinal haemorrhage [Unknown]
  - Proteinuria [Unknown]
  - Haemorrhage urinary tract [Unknown]
  - Nausea [Unknown]
  - Embolism [Unknown]
  - Pulmonary haemorrhage [Unknown]
  - Hypertension [Unknown]
